FAERS Safety Report 22601067 (Version 2)
Quarter: 2023Q2

REPORT INFORMATION
  Report Type: Spontaneous
  Country: GB (occurrence: GB)
  Receive Date: 20230614
  Receipt Date: 20230628
  Transmission Date: 20230722
  Serious: Yes (Other)
  Sender: FDA-Public Use
  Company Number: GB-MYLANLABS-2023M1061997

PATIENT
  Age: 64 Year
  Sex: Female

DRUGS (1)
  1. CLOZARIL [Suspect]
     Active Substance: CLOZAPINE
     Indication: Schizophrenia
     Dosage: UNK
     Route: 048
     Dates: start: 20230411

REACTIONS (7)
  - Neutrophil count decreased [Recovered/Resolved]
  - White blood cell count decreased [Recovered/Resolved]
  - Constipation [Unknown]
  - Blood glucose increased [Unknown]
  - Haemoglobin decreased [Unknown]
  - Eosinophil count decreased [Recovered/Resolved]
  - Platelet count increased [Unknown]

NARRATIVE: CASE EVENT DATE: 20230531
